FAERS Safety Report 8154952-7 (Version None)
Quarter: 2012Q1

REPORT INFORMATION
  Report Type: 
  Country: None (occurrence: None)
  Receive Date: 20120221
  Receipt Date: 20120216
  Transmission Date: 20120608
  Serious: Yes (Death)
  Sender: FDA-Public Use
  Company Number: PHHY2011US63502

PATIENT
  Sex: Female

DRUGS (2)
  1. CHEMOTHERAPEUTICS [Concomitant]
  2. SANDOSTATIN LAR [Suspect]
     Dosage: 30 MG, QMO

REACTIONS (1)
  - DEATH [None]
